FAERS Safety Report 8774343 (Version 1)
Quarter: 2012Q4

REPORT INFORMATION
  Report Type: 
  Country: US (occurrence: US)
  Receive Date: 20120907
  Receipt Date: 20120907
  Transmission Date: 20130627
  Serious: Yes (Other)
  Sender: FDA-Public Use
  Company Number: US-ELI_LILLY_AND_COMPANY-US201208008474

PATIENT
  Sex: Male

DRUGS (5)
  1. HUMULIN REGULAR [Suspect]
     Indication: TYPE 2 DIABETES MELLITUS
     Dosage: 100 u, bid
     Dates: end: 201208
  2. HUMULIN REGULAR [Suspect]
     Dosage: 400 u, qd
     Route: 058
     Dates: start: 20120816
  3. HUMULIN 30% REGULAR, 70% NPH [Suspect]
     Indication: TYPE 2 DIABETES MELLITUS
     Dosage: 100 u, bid
     Dates: end: 20120823
  4. ACTOS                                   /USA/ [Concomitant]
     Indication: TYPE 2 DIABETES MELLITUS
  5. AVANDIA [Concomitant]

REACTIONS (7)
  - Cardiac disorder [Unknown]
  - Visual impairment [Unknown]
  - Blood glucose increased [Unknown]
  - Oedema peripheral [Recovered/Resolved]
  - Mobility decreased [Recovered/Resolved]
  - Drug ineffective [Unknown]
  - Diabetes mellitus inadequate control [Unknown]
